FAERS Safety Report 6838425-7 (Version None)
Quarter: 2010Q3

REPORT INFORMATION
  Report Type: 
  Country: None (occurrence: None)
  Receive Date: 20100713
  Receipt Date: 20070619
  Transmission Date: 20110219
  Serious: No
  Sender: FDA-Public Use
  Company Number: US-PFIZER INC-2007048673

PATIENT
  Sex: Female

DRUGS (2)
  1. VARENICLINE [Suspect]
     Indication: SMOKING CESSATION THERAPY
     Dates: start: 20070601, end: 20070605
  2. PENTOSAN POLYSULFATE SODIUM [Concomitant]
     Indication: CROHN'S DISEASE

REACTIONS (7)
  - ABNORMAL DREAMS [None]
  - CONSTIPATION [None]
  - DIARRHOEA [None]
  - HEADACHE [None]
  - NAUSEA [None]
  - PYREXIA [None]
  - VOMITING [None]
